FAERS Safety Report 4676905-3 (Version None)
Quarter: 2005Q2

REPORT INFORMATION
  Report Type: 
  Country: None (occurrence: None)
  Receive Date: 20050526
  Receipt Date: 20050420
  Transmission Date: 20051028
  Serious: Yes (Hospitalization)
  Sender: FDA-Public Use
  Company Number: WAES 0504USA03624

PATIENT
  Sex: 0

DRUGS (1)
  1. VYTORIN [Suspect]
     Indication: HYPERCHOLESTEROLAEMIA
     Dosage: 10-40 MG/DAILY/PO
     Route: 048

REACTIONS (1)
  - PANCREATITIS [None]
